FAERS Safety Report 20207110 (Version 1)
Quarter: 2021Q4

REPORT INFORMATION
  Report Type: Spontaneous
  Country: US (occurrence: None)
  Receive Date: 20211219
  Receipt Date: 20211219
  Transmission Date: 20220303
  Serious: Yes (Disabling)
  Sender: FDA-Public Use
  Company Number: None

PATIENT
  Age: 56 Year
  Sex: Female
  Weight: 63 kg

DRUGS (8)
  1. BOTOX [Suspect]
     Active Substance: ONABOTULINUMTOXINA
     Indication: Migraine
     Dates: start: 20210118, end: 20210118
  2. Protons [Concomitant]
  3. ESTRACE [Concomitant]
     Active Substance: ESTRADIOL
  4. VITAMINS [Concomitant]
     Active Substance: VITAMINS
  5. VITAMIN D NOS [Concomitant]
     Active Substance: VITAMIN D NOS
  6. VITAMIN C [Concomitant]
     Active Substance: ASCORBIC ACID
  7. Essentialzymes 4 [Concomitant]
  8. essential oils topically [Concomitant]

REACTIONS (4)
  - Headache [None]
  - Dizziness postural [None]
  - Head discomfort [None]
  - Eye disorder [None]

NARRATIVE: CASE EVENT DATE: 20210125
